FAERS Safety Report 8178826 (Version 2)
Quarter: 2012Q4

REPORT INFORMATION
  Report Type: 
  Country: US (occurrence: US)
  Receive Date: 20111013
  Receipt Date: 20121001
  Transmission Date: 20130627
  Serious: Yes (Other)
  Sender: FDA-Public Use
  Company Number: US-GENZYME-CERZ-1002264

PATIENT
  Sex: Female

DRUGS (2)
  1. CEREZYME [Suspect]
     Indication: GAUCHER^S DISEASE
     Dosage: 60 mg/kg, q2w
     Route: 042
     Dates: start: 19980617, end: 20110930
  2. VPRIV [Suspect]
     Indication: GAUCHER^S DISEASE
     Dosage: UNK UNK, UNK
     Route: 042

REACTIONS (1)
  - Breast cancer in situ [Unknown]
